FAERS Safety Report 9458386 (Version 2)
Quarter: 2013Q3

REPORT INFORMATION
  Report Type: Spontaneous
  Country: BR (occurrence: BR)
  Receive Date: 20130814
  Receipt Date: 20130920
  Transmission Date: 20140515
  Serious: Yes (Other)
  Sender: FDA-Public Use
  Company Number: BR-PFIZER INC-2013231274

PATIENT
  Age: 79 Year
  Sex: Female
  Weight: 69 kg

DRUGS (3)
  1. XALATAN [Suspect]
     Indication: GLAUCOMA
     Dosage: 3 UG (1 DROP IN EACH EYE) 1X/DAY
     Route: 047
     Dates: start: 2009
  2. XALATAN [Suspect]
     Indication: CATARACT
  3. XALATAN [Suspect]
     Indication: INTRAOCULAR PRESSURE TEST

REACTIONS (4)
  - Visual acuity reduced [Not Recovered/Not Resolved]
  - Hypertension [Not Recovered/Not Resolved]
  - Sinusitis [Unknown]
  - Cough [Not Recovered/Not Resolved]
